FAERS Safety Report 6619507-1 (Version None)
Quarter: 2010Q1

REPORT INFORMATION
  Report Type: 
  Country: None (occurrence: None)
  Receive Date: 20100304
  Receipt Date: 20100218
  Transmission Date: 20100710
  Serious: Yes (Hospitalization)
  Sender: FDA-Public Use
  Company Number: 2010SP000182

PATIENT
  Age: 68 Year
  Sex: Female
  Weight: 70.7 kg

DRUGS (22)
  1. BROVANA [Suspect]
     Indication: CHRONIC OBSTRUCTIVE PULMONARY DISEASE
     Dosage: 15 UG/2ML;BID; INHALATION
     Route: 055
  2. XOPENEX [Suspect]
     Indication: CHRONIC OBSTRUCTIVE PULMONARY DISEASE
     Dosage: 1.25 MG/3ML; TID; INHALATION
     Route: 055
     Dates: start: 20080201, end: 20080101
  3. XOPENEX [Suspect]
     Indication: CHRONIC OBSTRUCTIVE PULMONARY DISEASE
     Dosage: 1.25 MG/3ML; TID; INHALATION
     Route: 055
     Dates: end: 20080301
  4. XOPENEX [Suspect]
     Indication: CHRONIC OBSTRUCTIVE PULMONARY DISEASE
     Dosage: 1.25 MG/3ML; TID; INHALATION
     Route: 055
     Dates: start: 20080101
  5. ACTONEL [Concomitant]
  6. NORVASC [Concomitant]
  7. NEXIUM [Concomitant]
  8. NORVASC [Concomitant]
  9. SINGULAIR [Concomitant]
  10. VITAMIN D [Concomitant]
  11. ZOCOR [Concomitant]
  12. ZYRTEC [Concomitant]
  13. PULMICORT [Concomitant]
  14. ASPIRIN [Concomitant]
  15. LISINOPRIL [Concomitant]
  16. CLARITIN [Concomitant]
  17. OS-CAL [Concomitant]
  18. IPRATROPIUM [Concomitant]
  19. VITAMIN B COMPLEX TAB [Concomitant]
  20. ADVAIR DISKUS 100/50 [Concomitant]
  21. TYLENOL-500 [Concomitant]
  22. NASONEX [Concomitant]

REACTIONS (44)
  - ANXIETY [None]
  - ASTHMA [None]
  - BLOOD POTASSIUM DECREASED [None]
  - BLOOD PRESSURE FLUCTUATION [None]
  - CHOLELITHIASIS [None]
  - CHRONIC OBSTRUCTIVE PULMONARY DISEASE [None]
  - COLITIS [None]
  - COMPUTERISED TOMOGRAM THORAX ABNORMAL [None]
  - CONDITION AGGRAVATED [None]
  - CRYING [None]
  - DEPRESSION [None]
  - DIABETES MELLITUS [None]
  - DIARRHOEA [None]
  - DIVERTICULUM [None]
  - DIZZINESS [None]
  - DYSKINESIA OESOPHAGEAL [None]
  - EPISTAXIS [None]
  - GASTRITIS EROSIVE [None]
  - GASTROOESOPHAGEAL REFLUX DISEASE [None]
  - HAEMORRHOIDAL HAEMORRHAGE [None]
  - HELICOBACTER INFECTION [None]
  - HERPES ZOSTER [None]
  - HIATUS HERNIA [None]
  - HYPERHIDROSIS [None]
  - HYPOPHAGIA [None]
  - INTERVERTEBRAL DISC SPACE NARROWING [None]
  - LARGE INTESTINAL ULCER HAEMORRHAGE [None]
  - LARYNGOSCOPY ABNORMAL [None]
  - MOOD ALTERED [None]
  - MUSCULOSKELETAL CHEST PAIN [None]
  - MYALGIA [None]
  - NASAL SEPTUM DEVIATION [None]
  - OEDEMA [None]
  - PELVIC FLUID COLLECTION [None]
  - SINUSITIS [None]
  - SLEEP DISORDER [None]
  - SPUTUM DISCOLOURED [None]
  - SWELLING [None]
  - THROAT IRRITATION [None]
  - THROMBOSIS [None]
  - VITAL CAPACITY DECREASED [None]
  - VOMITING [None]
  - WEIGHT FLUCTUATION [None]
  - WEIGHT INCREASED [None]
